FAERS Safety Report 17684945 (Version 3)
Quarter: 2020Q4

REPORT INFORMATION
  Report Type: Spontaneous
  Country: US (occurrence: US)
  Receive Date: 20200420
  Receipt Date: 20201005
  Transmission Date: 20210113
  Serious: Yes (Other)
  Sender: FDA-Public Use
  Company Number: US-GILEAD-2020-0459677

PATIENT
  Age: 54 Year
  Sex: Female

DRUGS (1)
  1. VIREAD [Suspect]
     Active Substance: TENOFOVIR DISOPROXIL FUMARATE
     Indication: HIV INFECTION
     Dosage: UNK
     Route: 048
     Dates: start: 201007, end: 201208

REACTIONS (7)
  - Renal failure [Unknown]
  - Anxiety [Unknown]
  - Chronic kidney disease [Not Recovered/Not Resolved]
  - Economic problem [Unknown]
  - Emotional distress [Unknown]
  - Pain [Unknown]
  - Anhedonia [Unknown]

NARRATIVE: CASE EVENT DATE: 20090101
